FAERS Safety Report 7054135-8 (Version None)
Quarter: 2010Q4

REPORT INFORMATION
  Report Type: 
  Country: None (occurrence: None)
  Receive Date: 20101015
  Receipt Date: 20101008
  Transmission Date: 20110411
  Serious: Yes (Life-Threatening, Hospitalization)
  Sender: FDA-Public Use
  Company Number: TIR-00022

PATIENT
  Age: 23 Year
  Sex: Female

DRUGS (1)
  1. THYRAX (LEVOTHYROXINE) [Suspect]
     Indication: HYPOTHYROIDISM
     Dosage: 25 MG ONCE (250 TABLETS OF 100 MCG EACH), ORAL
     Route: 048
     Dates: start: 20081017

REACTIONS (9)
  - BLOOD THROMBIN INCREASED [None]
  - COAGULATION FACTOR IX LEVEL INCREASED [None]
  - COAGULATION FACTOR VIII LEVEL INCREASED [None]
  - COAGULATION FACTOR X LEVEL INCREASED [None]
  - OVERDOSE [None]
  - PLASMINOGEN ACTIVATOR INHIBITOR INCREASED [None]
  - SUICIDE ATTEMPT [None]
  - VON WILLEBRAND'S FACTOR ACTIVITY INCREASED [None]
  - VON WILLEBRAND'S FACTOR ANTIGEN INCREASED [None]
